FAERS Safety Report 5129674-7 (Version None)
Quarter: 2006Q4

REPORT INFORMATION
  Report Type: 
  Country: None (occurrence: None)
  Receive Date: 20061018
  Receipt Date: 20061017
  Transmission Date: 20070319
  Serious: Yes (Hospitalization)
  Sender: FDA-Public Use
  Company Number: US-GLAXOSMITHKLINE-A0623908A

PATIENT
  Age: 48 Year
  Sex: Female

DRUGS (7)
  1. LAMICTAL [Suspect]
     Indication: BIPOLAR DISORDER
     Dosage: 25MG ALTERNATE DAYS
     Route: 048
     Dates: start: 20060929, end: 20061009
  2. DEPAKOTE [Concomitant]
  3. SYNTHROID [Concomitant]
  4. KLONOPIN [Concomitant]
  5. LITHIUM CARBONATE [Concomitant]
  6. ASPIRIN [Concomitant]
  7. VITAMINS [Concomitant]

REACTIONS (8)
  - DECREASED ACTIVITY [None]
  - DEPRESSED LEVEL OF CONSCIOUSNESS [None]
  - INCONTINENCE [None]
  - LETHARGY [None]
  - PYREXIA [None]
  - RASH [None]
  - SWELLING [None]
  - WHITE BLOOD CELL COUNT DECREASED [None]
